FAERS Safety Report 9524340 (Version 1)
Quarter: 2013Q3

REPORT INFORMATION
  Report Type: Spontaneous
  Country: US (occurrence: US)
  Receive Date: 20130916
  Receipt Date: 20130916
  Transmission Date: 20140515
  Serious: Yes (Other)
  Sender: FDA-Public Use
  Company Number: US-BAYER-2013-111058

PATIENT
  Age: 57 Year
  Sex: Male

DRUGS (1)
  1. STIVARGA [Suspect]
     Indication: NEOPLASM MALIGNANT
     Dosage: 160 MG, (40 MG X 4) QD
     Route: 048

REACTIONS (2)
  - Drug ineffective [None]
  - Malignant neoplasm progression [None]
